FAERS Safety Report 18668211 (Version 1)
Quarter: 2020Q4

REPORT INFORMATION
  Report Type: Spontaneous
  Country: US (occurrence: US)
  Receive Date: 20201227
  Receipt Date: 20201227
  Transmission Date: 20210114
  Serious: Yes (Life-Threatening, Hospitalization)
  Sender: FDA-Public Use
  Company Number: None

PATIENT
  Age: 29 Year
  Sex: Female
  Weight: 92.53 kg

DRUGS (5)
  1. METFORMIN [Concomitant]
     Active Substance: METFORMIN HYDROCHLORIDE
  2. ADIPEX [Concomitant]
     Active Substance: PHENTERMINE
  3. ALLEGRA [Concomitant]
     Active Substance: FEXOFENADINE HYDROCHLORIDE
  4. NEXPLANON [Suspect]
     Active Substance: ETONOGESTREL
     Dates: start: 20201223
  5. FLONASE [Concomitant]
     Active Substance: FLUTICASONE PROPIONATE

REACTIONS (21)
  - Loss of consciousness [None]
  - Asthenia [None]
  - Headache [None]
  - Visual impairment [None]
  - Insulin resistance [None]
  - Peripheral swelling [None]
  - Fatigue [None]
  - Vision blurred [None]
  - Rosacea [None]
  - Confusional state [None]
  - Nausea [None]
  - Dysstasia [None]
  - Fall [None]
  - Erythema [None]
  - Chest pain [None]
  - Vertigo [None]
  - Dizziness [None]
  - Throat tightness [None]
  - Varicose vein [None]
  - Skin discolouration [None]
  - Decreased appetite [None]

NARRATIVE: CASE EVENT DATE: 20201223
